FAERS Safety Report 19710269 (Version 1)
Quarter: 2021Q3

REPORT INFORMATION
  Report Type: Spontaneous
  Country: US (occurrence: US)
  Receive Date: 20210816
  Receipt Date: 20210816
  Transmission Date: 20211014
  Serious: Yes (Death, Hospitalization)
  Sender: FDA-Public Use
  Company Number: US-JNJFOC-20210805313

PATIENT
  Age: 56 Year
  Sex: Female
  Weight: 51 kg

DRUGS (4)
  1. PARACETAMOL [Suspect]
     Active Substance: ACETAMINOPHEN
     Indication: SUICIDE ATTEMPT
     Dosage: UNKNOWN DOSE ONCE A DAY ON 27?DEC?2001 BEFORE 20:30 IN A SUICIDE ATTEMPT
     Route: 048
     Dates: start: 20011227, end: 20011227
  2. PAXIL [Suspect]
     Active Substance: PAROXETINE HYDROCHLORIDE
     Indication: SUICIDE ATTEMPT
     Dosage: UNKNOWN DOSE ONCE A DAY ON 27?DEC?2001 BEFORE 20:30 IN A SUICIDE ATTEMPT
     Route: 065
     Dates: start: 20011227, end: 20011227
  3. EFFEXOR [Suspect]
     Active Substance: VENLAFAXINE HYDROCHLORIDE
     Indication: SUICIDE ATTEMPT
     Dosage: UNKNOWN DOSE ONCE A DAY ON 27?DEC?2001 BEFORE 20:30 IN A SUICIDE ATTEMPT
     Route: 065
     Dates: start: 20011227, end: 20011227
  4. VALIUM [Suspect]
     Active Substance: DIAZEPAM
     Indication: SUICIDE ATTEMPT
     Dosage: UNKNOWN DOSE ONCE A DAY ON 27?DEC?2001 BEFORE 20:30 IN A SUICIDE ATTEMPT
     Route: 065
     Dates: start: 20011227, end: 20011227

REACTIONS (17)
  - Body temperature decreased [Fatal]
  - Blood calcium decreased [Fatal]
  - Blood pH decreased [Fatal]
  - Lymphocyte percentage decreased [Fatal]
  - Intentional overdose [Fatal]
  - Multiple organ dysfunction syndrome [Fatal]
  - Blood glucose increased [Fatal]
  - Acute kidney injury [Fatal]
  - Blood chloride decreased [Fatal]
  - Blood bicarbonate decreased [Fatal]
  - Respiratory failure [Fatal]
  - Amylase increased [Fatal]
  - Neutrophil percentage increased [Fatal]
  - Carbon dioxide decreased [Fatal]
  - Completed suicide [Fatal]
  - Acute hepatic failure [Fatal]
  - Myocardial infarction [Fatal]

NARRATIVE: CASE EVENT DATE: 20011228
